FAERS Safety Report 4862163-3 (Version None)
Quarter: 2005Q4

REPORT INFORMATION
  Report Type: 
  Country: None (occurrence: None)
  Receive Date: 20051201
  Receipt Date: 20050813
  Transmission Date: 20060501
  Serious: No
  Sender: FDA-Public Use
  Company Number: 2005PV001189

PATIENT
  Age: 56 Year
  Sex: Female
  Weight: 84.8226 kg

DRUGS (16)
  1. BYETTA [Suspect]
     Indication: DIABETES MELLITUS NON-INSULIN-DEPENDENT
     Dosage: 5 MCG; BID; SC
     Route: 058
     Dates: start: 20050728
  2. GLUCOPHAGE [Concomitant]
  3. TRICOR [Concomitant]
  4. SYNTHROID [Concomitant]
  5. PREMARIN [Concomitant]
  6. ATENOLOL [Concomitant]
  7. PRINIVIL [Concomitant]
  8. ZOCOR [Concomitant]
  9. FOLIC ACID [Concomitant]
  10. VITAMIN E [Concomitant]
  11. CENTRUM [Concomitant]
  12. CALCIUM GLUCONATE [Concomitant]
  13. ACTOS [Concomitant]
  14. CLARINEX [Concomitant]
  15. ARISTACORT [Concomitant]
  16. LANTUS [Concomitant]

REACTIONS (6)
  - BLOOD GLUCOSE INCREASED [None]
  - DRY MOUTH [None]
  - FEELING JITTERY [None]
  - HEADACHE [None]
  - NAUSEA [None]
  - WEIGHT DECREASED [None]
